FAERS Safety Report 24067396 (Version 1)
Quarter: 2024Q3

REPORT INFORMATION
  Report Type: Spontaneous
  Country: US (occurrence: US)
  Receive Date: 20240709
  Receipt Date: 20240709
  Transmission Date: 20241016
  Serious: No
  Sender: MERCK
  Company Number: US-009507513-2406USA005487

PATIENT
  Age: 64 Year
  Sex: Female
  Weight: 51.247 kg

DRUGS (3)
  1. BELSOMRA [Suspect]
     Active Substance: SUVOREXANT
     Indication: Insomnia
     Dosage: 15 MILLIGRAM, ONCE DAILY (QD)
     Route: 048
     Dates: start: 20240612, end: 20240613
  2. ALPRAZOLAM [Concomitant]
     Active Substance: ALPRAZOLAM
  3. OXYCODONE [Concomitant]
     Active Substance: OXYCODONE

REACTIONS (15)
  - Lip swelling [Not Recovered/Not Resolved]
  - Urticaria [Not Recovered/Not Resolved]
  - Abdominal pain upper [Not Recovered/Not Resolved]
  - Dyspepsia [Not Recovered/Not Resolved]
  - Skin tightness [Not Recovered/Not Resolved]
  - Dry skin [Not Recovered/Not Resolved]
  - Joint range of motion decreased [Not Recovered/Not Resolved]
  - Pyrexia [Not Recovered/Not Resolved]
  - Drug ineffective [Not Recovered/Not Resolved]
  - Oliguria [Not Recovered/Not Resolved]
  - Dry mouth [Not Recovered/Not Resolved]
  - Pruritus [Not Recovered/Not Resolved]
  - Nausea [Not Recovered/Not Resolved]
  - Diarrhoea [Not Recovered/Not Resolved]
  - Headache [Not Recovered/Not Resolved]

NARRATIVE: CASE EVENT DATE: 20240601
